FAERS Safety Report 18506571 (Version 1)
Quarter: 2020Q4

REPORT INFORMATION
  Report Type: Spontaneous
  Country: GB (occurrence: GB)
  Receive Date: 20201113
  Receipt Date: 20201113
  Transmission Date: 20210114
  Serious: No
  Sender: FDA-Public Use
  Company Number: None

PATIENT
  Age: 39 Year
  Sex: Female
  Weight: 54 kg

DRUGS (8)
  1. DIM [Concomitant]
  2. CDG [Concomitant]
  3. CYMBALTA [Suspect]
     Active Substance: DULOXETINE HYDROCHLORIDE
     Indication: INTERVERTEBRAL DISC PROTRUSION
     Dosage: ?          QUANTITY:1 CAPSULE(S);?
     Route: 048
     Dates: start: 20200910
  4. MAGNESIUM [Concomitant]
     Active Substance: MAGNESIUM
  5. CHLORELLA [Concomitant]
     Active Substance: DIETARY SUPPLEMENT
  6. VITAMIN B12 [Concomitant]
     Active Substance: CYANOCOBALAMIN
  7. FISH OIL [Concomitant]
     Active Substance: FISH OIL
  8. PROBIOTICS [Concomitant]
     Active Substance: PROBIOTICS NOS

REACTIONS (9)
  - Fatigue [None]
  - Drug ineffective [None]
  - Dizziness [None]
  - Hepatic pain [None]
  - Decreased appetite [None]
  - Insomnia [None]
  - Weight decreased [None]
  - Pain [None]
  - Constipation [None]

NARRATIVE: CASE EVENT DATE: 20201108
